FAERS Safety Report 4554323-6 (Version None)
Quarter: 2005Q1

REPORT INFORMATION
  Report Type: 
  Country: None (occurrence: None)
  Receive Date: 20050118
  Receipt Date: 20050106
  Transmission Date: 20050727
  Serious: Yes (Other)
  Sender: FDA-Public Use
  Company Number: 200510131US

PATIENT
  Sex: Female
  Weight: 69 kg

DRUGS (4)
  1. ARAVA [Suspect]
     Indication: DERMATOMYOSITIS
     Dosage: DOSE: 1+ 1/2 TABLETS
     Route: 048
     Dates: start: 20041005
  2. PREDNISONE [Concomitant]
     Indication: DERMATOMYOSITIS
  3. FOSAMAX [Concomitant]
     Indication: OSTEOPENIA
     Dosage: DOSE: UNK
  4. AMBIEN [Concomitant]

REACTIONS (3)
  - BUNDLE BRANCH BLOCK LEFT [None]
  - HYPERTENSION [None]
  - PAIN IN EXTREMITY [None]
